FAERS Safety Report 6817541-X (Version None)
Quarter: 2010Q3

REPORT INFORMATION
  Report Type: 
  Country: None (occurrence: None)
  Receive Date: 20100706
  Receipt Date: 20100625
  Transmission Date: 20110219
  Serious: No
  Sender: FDA-Public Use
  Company Number: US-JNJFOC-20100700013

PATIENT
  Sex: Female
  Weight: 136.08 kg

DRUGS (6)
  1. DURAGESIC-100 [Suspect]
     Indication: JOINT INJURY
     Route: 062
  2. DURAGESIC-100 [Suspect]
     Indication: FIBROMYALGIA
     Route: 062
  3. DURAGESIC-100 [Suspect]
     Indication: INTERVERTEBRAL DISC PROTRUSION
     Route: 062
  4. PROZAC [Concomitant]
     Indication: DEPRESSION
     Route: 048
  5. LAMICTAL [Concomitant]
     Indication: DEPRESSION
     Route: 048
  6. LAMICTAL [Concomitant]
     Indication: ANXIETY
     Route: 048

REACTIONS (1)
  - WRONG TECHNIQUE IN DRUG USAGE PROCESS [None]
